FAERS Safety Report 5604784-6 (Version None)
Quarter: 2008Q1

REPORT INFORMATION
  Report Type: 
  Country: None (occurrence: None)
  Receive Date: 20080128
  Receipt Date: 20080118
  Transmission Date: 20080703
  Serious: Yes (Other)
  Sender: FDA-Public Use
  Company Number: GB-ROCHE-542300

PATIENT
  Age: 44 Year
  Sex: Female
  Weight: 81 kg

DRUGS (19)
  1. ORLISTAT [Suspect]
     Indication: OBESITY
     Route: 048
     Dates: start: 20070911
  2. ORLISTAT [Suspect]
     Route: 048
  3. METHOTREXATE [Concomitant]
     Dosage: DRUG NAME: METHATREXATE, START DATE: NOVEMBER
     Route: 048
  4. FOLIC ACID [Concomitant]
     Dosage: START DATE: NOVEMBER
     Route: 048
  5. SIMVASTATIN [Concomitant]
     Dosage: START DATE: LONG TERM USE
     Route: 048
  6. RENNIE [Concomitant]
     Dosage: DRUG NAME: RENNIE LIQUID, START DATE: LONG TERM USE
     Route: 048
  7. ALENDRONIC ACID [Concomitant]
     Indication: PROPHYLAXIS
     Dosage: DRUG NAME REPORTED: ALENDONIC ACID, START DATE: LONG TERM USE
     Route: 048
  8. 1 CONCOMITANT DRUG [Concomitant]
     Dosage: DRUG NAME: FEXOSDNADINE, START DATE: LONG TERM USE
     Route: 048
  9. 1 CONCOMITANT DRUG [Concomitant]
     Dosage: DRUG NAME: LANZAPRAZOLE, START DATE: LONG TERM USE
     Route: 048
  10. VENTOLIN [Concomitant]
     Indication: ASTHMA
     Dosage: START DATE: LONG TERM USE
     Route: 055
  11. 1 CONCOMITANT DRUG [Concomitant]
     Indication: ASTHMA
     Dosage: DRUG NAME: MONTERUKAST, START DATE: LONG TERM USE
     Route: 048
  12. UNIPHYL [Concomitant]
     Indication: ASTHMA
     Dosage: START DATE: LONG TERM USE
     Route: 048
  13. 1 CONCOMITANT DRUG [Concomitant]
     Indication: DEPRESSION
     Dosage: DRUG NAME: PEROXITINE, START DATE: LONG TERM USE
     Route: 048
  14. 1 CONCOMITANT DRUG [Concomitant]
     Indication: PAIN
     Dosage: DRUG NAME: COCODOMOL, START DATE: LONG TERM USE
     Route: 048
  15. BUDESONIDE [Concomitant]
     Indication: ASTHMA
     Dosage: DRUG NAME: BUDESONIDE NEBULISER, DOSAGE: 1 MG IN 2 ML, START DATE: LONG TERM USE
     Route: 055
  16. VENTOLIN [Concomitant]
     Indication: ASTHMA
     Dosage: START DATE: LONG TERM USE
     Route: 055
  17. 1 CONCOMITANT DRUG [Concomitant]
     Dosage: DRUG NAME: SALNETEROL, START DATE: LONG TERM USE
     Route: 055
  18. IPRATROPIUM BROMIDE [Concomitant]
     Indication: ASTHMA
     Dosage: START DATE: LONG TERM USE
     Route: 055
  19. 1 CONCOMITANT DRUG [Concomitant]
     Indication: SLEEP DISORDER THERAPY
     Dosage: DRUG NAME: ZOPLACONE
     Route: 048

REACTIONS (2)
  - ASTHMA [None]
  - LOWER RESPIRATORY TRACT INFECTION [None]
